FAERS Safety Report 5311767-2 (Version None)
Quarter: 2007Q2

REPORT INFORMATION
  Report Type: 
  Country: None (occurrence: None)
  Receive Date: 20070430
  Receipt Date: 20060316
  Transmission Date: 20071010
  Serious: No
  Sender: FDA-Public Use
  Company Number: 2006UW04509

PATIENT
  Age: 79 Year
  Sex: Female
  Weight: 67.1 kg

DRUGS (4)
  1. NEXIUM [Suspect]
     Indication: REFLUX OESOPHAGITIS
     Route: 048
     Dates: start: 20010101
  2. DIGOXIN [Concomitant]
  3. EVISTA [Concomitant]
  4. METOPROLOL SUCCINATE [Concomitant]

REACTIONS (4)
  - COUGH [None]
  - DIZZINESS POSTURAL [None]
  - HEADACHE [None]
  - SNEEZING [None]
